FAERS Safety Report 7226990-X (Version None)
Quarter: 2011Q1

REPORT INFORMATION
  Report Type: 
  Country: None (occurrence: None)
  Receive Date: 20110114
  Receipt Date: 20110103
  Transmission Date: 20110831
  Serious: Yes (Other)
  Sender: FDA-Public Use
  Company Number: US-ELI_LILLY_AND_COMPANY-US201101000875

PATIENT
  Sex: Male

DRUGS (2)
  1. ZYPREXA ZYDIS [Suspect]
  2. ZYPREXA [Suspect]
     Dosage: UNK, 2/D
     Dates: start: 20050101

REACTIONS (3)
  - MITRAL VALVE REPAIR [None]
  - CARDIAC DISORDER [None]
  - MYOCARDIAL INFARCTION [None]
